FAERS Safety Report 6295689-9 (Version None)
Quarter: 2009Q3

REPORT INFORMATION
  Report Type: 
  Country: None (occurrence: None)
  Receive Date: 20090804
  Receipt Date: 20090724
  Transmission Date: 20100115
  Serious: Yes (Hospitalization)
  Sender: FDA-Public Use
  Company Number: US-BAYER-200928675NA

PATIENT
  Sex: Female

DRUGS (1)
  1. BETASERON [Suspect]
     Indication: DRUG USE FOR UNKNOWN INDICATION

REACTIONS (6)
  - ABASIA [None]
  - ARTHRALGIA [None]
  - FATIGUE [None]
  - MYOCARDIAL INFARCTION [None]
  - SENSATION OF HEAVINESS [None]
  - VISION BLURRED [None]
